FAERS Safety Report 7530164-2 (Version None)
Quarter: 2011Q2

REPORT INFORMATION
  Report Type: 
  Country: None (occurrence: None)
  Receive Date: 20110607
  Receipt Date: 20110523
  Transmission Date: 20111010
  Serious: Yes (Hospitalization)
  Sender: FDA-Public Use
  Company Number: FR-JNJFOC-20110510480

PATIENT
  Age: 52 Year
  Sex: Female
  Weight: 47 kg

DRUGS (6)
  1. REMICADE [Suspect]
     Route: 042
     Dates: start: 20100303
  2. HYDROCORTISONE [Concomitant]
     Route: 048
     Dates: start: 20100303
  3. PENTASA [Concomitant]
     Indication: COLITIS ULCERATIVE
  4. TRAMADOL HCL [Concomitant]
     Route: 048
  5. NEXIUM [Concomitant]
  6. REMICADE [Suspect]
     Indication: COLITIS ULCERATIVE
     Route: 042

REACTIONS (11)
  - CYTOMEGALOVIRUS INFECTION [None]
  - DIARRHOEA HAEMORRHAGIC [None]
  - COLITIS ULCERATIVE [None]
  - ASTHENIA [None]
  - DECREASED APPETITE [None]
  - ANORECTAL DISORDER [None]
  - ANAEMIA [None]
  - CLOSTRIDIAL INFECTION [None]
  - WEIGHT DECREASED [None]
  - ABDOMINAL PAIN [None]
  - GENERAL PHYSICAL CONDITION ABNORMAL [None]
